FAERS Safety Report 6090679-3 (Version None)
Quarter: 2009Q1

REPORT INFORMATION
  Report Type: 
  Country: None (occurrence: None)
  Receive Date: 20090224
  Receipt Date: 20090128
  Transmission Date: 20090719
  Serious: No
  Sender: FDA-Public Use
  Company Number: US-ABBOTT-09P-163-0500806-00

PATIENT
  Sex: Male
  Weight: 65.83 kg

DRUGS (3)
  1. SIMCOR [Suspect]
     Indication: BLOOD TRIGLYCERIDES INCREASED
     Dosage: 500/20MG
     Route: 048
     Dates: start: 20080701
  2. FELODIPINE [Concomitant]
     Indication: HYPERTENSION
     Dosage: UNKNOWN
  3. XANAX [Concomitant]
     Indication: DRUG USE FOR UNKNOWN INDICATION
     Dosage: UNKNOWN

REACTIONS (3)
  - BLOOD TRIGLYCERIDES INCREASED [None]
  - NOCTURIA [None]
  - PARAESTHESIA [None]
